FAERS Safety Report 16079170 (Version 1)
Quarter: 2019Q1

REPORT INFORMATION
  Report Type: Spontaneous
  Country: US (occurrence: US)
  Receive Date: 20190315
  Receipt Date: 20190315
  Transmission Date: 20190418
  Serious: No
  Sender: FDA-Public Use
  Company Number: US-PERRIGO-18US014051

PATIENT
  Age: 73 Year
  Sex: Male
  Weight: 79.37 kg

DRUGS (1)
  1. TESTOSTERONE CYPIONATE. [Suspect]
     Active Substance: TESTOSTERONE CYPIONATE
     Indication: ANDROGEN DEFICIENCY
     Dosage: 200 MG, EVERY OTHER WEEK
     Route: 030
     Dates: start: 2014, end: 20181126

REACTIONS (4)
  - Injection site warmth [Recovered/Resolved]
  - Injection site pain [Not Recovered/Not Resolved]
  - Injection site nodule [Not Recovered/Not Resolved]
  - Injection site inflammation [Recovered/Resolved]

NARRATIVE: CASE EVENT DATE: 20181113
